FAERS Safety Report 23118419 (Version 1)
Quarter: 2023Q4

REPORT INFORMATION
  Report Type: Report from Study
  Country: US (occurrence: US)
  Receive Date: 20231028
  Receipt Date: 20231028
  Transmission Date: 20240109
  Serious: Yes (Other)
  Sender: FDA-Public Use
  Company Number: US-ABBVIE-5178495

PATIENT
  Sex: Female

DRUGS (4)
  1. SKYRIZI [Suspect]
     Active Substance: RISANKIZUMAB-RZAA
     Indication: Psoriasis
     Dosage: STRENGTH 150 MG/ML, WEEK 4
     Route: 058
     Dates: start: 202304, end: 202304
  2. SKYRIZI [Suspect]
     Active Substance: RISANKIZUMAB-RZAA
     Dosage: STRENGTH 150 MG/ML, WEEK 0
     Route: 058
     Dates: start: 202303, end: 202303
  3. SKYRIZI [Suspect]
     Active Substance: RISANKIZUMAB-RZAA
     Dosage: STRENGTH 150 MG/ML, EVERY 12 WEEKS THEREAFTER
     Route: 058
     Dates: start: 202309
  4. SKYRIZI [Suspect]
     Active Substance: RISANKIZUMAB-RZAA
     Route: 058

REACTIONS (11)
  - Breast cancer [Unknown]
  - Urticaria [Unknown]
  - Alopecia [Unknown]
  - Psoriasis [Recovered/Resolved]
  - Depression [Not Recovered/Not Resolved]
  - Anxiety [Unknown]
  - Liver disorder [Unknown]
  - White blood cell count abnormal [Unknown]
  - Drug ineffective [Recovered/Resolved]
  - Hepatitis acute [Unknown]
  - Red blood cell count abnormal [Unknown]

NARRATIVE: CASE EVENT DATE: 20230101
